FAERS Safety Report 6792808-2 (Version None)
Quarter: 2010Q2

REPORT INFORMATION
  Report Type: 
  Country: None (occurrence: None)
  Receive Date: 20100624
  Receipt Date: 20081030
  Transmission Date: 20101027
  Serious: No
  Sender: FDA-Public Use
  Company Number: US-PFIZER INC-2008084409

PATIENT
  Sex: Male

DRUGS (1)
  1. PROCARDIA XL [Suspect]

REACTIONS (2)
  - BLOOD PRESSURE INADEQUATELY CONTROLLED [None]
  - WRONG TECHNIQUE IN DRUG USAGE PROCESS [None]
